FAERS Safety Report 14312840 (Version 1)
Quarter: 2017Q4

REPORT INFORMATION
  Report Type: Spontaneous
  Country: US (occurrence: US)
  Receive Date: 20171220
  Receipt Date: 20171220
  Transmission Date: 20180321
  Serious: No
  Sender: FDA-Public Use
  Company Number: None

PATIENT
  Age: 49 Year
  Sex: Female

DRUGS (1)
  1. RIBAVIRIN TAB 200MG [Suspect]
     Active Substance: RIBAVIRIN

REACTIONS (6)
  - Viral load increased [None]
  - Dry mouth [None]
  - Somnolence [None]
  - Anaemia [None]
  - Therapy change [None]
  - Fatigue [None]

NARRATIVE: CASE EVENT DATE: 20171220
